FAERS Safety Report 18622825 (Version 1)
Quarter: 2020Q4

REPORT INFORMATION
  Report Type: Spontaneous
  Country: US (occurrence: US)
  Receive Date: 20201216
  Receipt Date: 20201216
  Transmission Date: 20210114
  Serious: Yes (Other)
  Sender: FDA-Public Use
  Company Number: US-RECORDATI RARE DISEASES INC.-2020005084

PATIENT

DRUGS (4)
  1. COSMEGEN [Suspect]
     Active Substance: DACTINOMYCIN
     Indication: ALVEOLAR RHABDOMYOSARCOMA
     Dosage: 0.05 MILLIGRAM/KILOGRAM ON DAY 1
     Route: 042
     Dates: start: 20180330, end: 20180330
  2. CYCLOPHOSPHAMIDE. [Suspect]
     Active Substance: CYCLOPHOSPHAMIDE
     Indication: ALVEOLAR RHABDOMYOSARCOMA
     Dosage: 1200 MILLIEQUIVALENT PER SQUARE METRE, QD, ON DAY 1 OF CYCLE 1
     Route: 042
     Dates: start: 20180330, end: 20180330
  3. VINCRISTINE SULFATE. [Suspect]
     Active Substance: VINCRISTINE SULFATE
     Indication: ALVEOLAR RHABDOMYOSARCOMA
     Dosage: 1.5 MILLIEQUIVALENT PER SQUARE METRE, ON DAYS 1,8 AND 15
     Route: 042
     Dates: start: 20180330
  4. TEMSIROLIMUS. [Suspect]
     Active Substance: TEMSIROLIMUS
     Indication: ALVEOLAR RHABDOMYOSARCOMA
     Dosage: 15 MILLIEQUIVALENT PER SQUARE METRE ON DAYS 1, 8, 15
     Route: 042
     Dates: start: 20180330, end: 20180406

REACTIONS (1)
  - Wound dehiscence [Recovered/Resolved]

NARRATIVE: CASE EVENT DATE: 20180413
